FAERS Safety Report 6892759-9 (Version None)
Quarter: 2010Q3

REPORT INFORMATION
  Report Type: 
  Country: None (occurrence: None)
  Receive Date: 20100731
  Receipt Date: 20080908
  Transmission Date: 20110219
  Serious: Yes (Other)
  Sender: FDA-Public Use
  Company Number: US-PFIZER INC-2008057498

PATIENT
  Sex: Female

DRUGS (5)
  1. GABAPENTIN [Suspect]
     Indication: MYALGIA
  2. GABAPENTIN [Suspect]
     Indication: NEURALGIA
  3. LYRICA [Suspect]
     Indication: MYALGIA
  4. LYRICA [Suspect]
     Indication: NEURALGIA
  5. INSULIN [Concomitant]

REACTIONS (1)
  - SWELLING [None]
